FAERS Safety Report 7570838-0 (Version None)
Quarter: 2011Q2

REPORT INFORMATION
  Report Type: 
  Country: None (occurrence: None)
  Receive Date: 20110624
  Receipt Date: 20110621
  Transmission Date: 20111010
  Serious: Yes (Other)
  Sender: FDA-Public Use
  Company Number: DE-ABBOTT-11P-062-0732472-00

PATIENT
  Sex: Female
  Weight: 83 kg

DRUGS (3)
  1. HUMIRA [Suspect]
     Indication: RHEUMATOID ARTHRITIS
     Route: 058
     Dates: start: 20110214
  2. PREDNISOLONE [Concomitant]
     Indication: RHEUMATOID ARTHRITIS
     Dosage: 10MG DAILY
     Route: 048
     Dates: start: 20110510
  3. METHOTREXATE [Concomitant]
     Indication: RHEUMATOID ARTHRITIS

REACTIONS (3)
  - NASOPHARYNGITIS [None]
  - LEUKOCYTOSIS [None]
  - EOSINOPHILIA [None]
